FAERS Safety Report 9682265 (Version 3)
Quarter: 2013Q4

REPORT INFORMATION
  Report Type: Report from Study
  Country: DE (occurrence: DE)
  Receive Date: 20131112
  Receipt Date: 20131127
  Transmission Date: 20140711
  Serious: No
  Sender: FDA-Public Use
  Company Number: DE-ROCHE-1302247

PATIENT
  Sex: Female

DRUGS (3)
  1. RANIBIZUMAB [Suspect]
     Indication: AGE-RELATED MACULAR DEGENERATION
     Route: 050
     Dates: start: 20121025
  2. RANIBIZUMAB [Suspect]
     Route: 050
     Dates: start: 20121206
  3. RANIBIZUMAB [Suspect]
     Route: 050
     Dates: start: 20131002, end: 20131002

REACTIONS (1)
  - Macular scar [Unknown]
